FAERS Safety Report 7499160-8 (Version None)
Quarter: 2011Q2

REPORT INFORMATION
  Report Type: 
  Country: None (occurrence: None)
  Receive Date: 20110524
  Receipt Date: 20110516
  Transmission Date: 20111010
  Serious: Yes (Other)
  Sender: FDA-Public Use
  Company Number: US-JNJFOC-20110508399

PATIENT
  Sex: Female
  Weight: 63.5 kg

DRUGS (1)
  1. LEVAQUIN [Suspect]
     Indication: BACTERIAL INFECTION
     Route: 048
     Dates: start: 20110429, end: 20110430

REACTIONS (13)
  - MUSCULOSKELETAL STIFFNESS [None]
  - ERYTHEMA [None]
  - PALPITATIONS [None]
  - FATIGUE [None]
  - MUSCLE SPASMS [None]
  - BLOOD PRESSURE INCREASED [None]
  - PAIN [None]
  - ABASIA [None]
  - HYPOAESTHESIA [None]
  - FEELING ABNORMAL [None]
  - INFLUENZA LIKE ILLNESS [None]
  - ARTHRALGIA [None]
  - JOINT SWELLING [None]
